FAERS Safety Report 10466587 (Version 1)
Quarter: 2014Q3

REPORT INFORMATION
  Report Type: Spontaneous
  Country: US (occurrence: None)
  Receive Date: 20140919
  Receipt Date: 20140919
  Transmission Date: 20150326
  Serious: Yes (Disabling)
  Sender: FDA-Public Use
  Company Number: None

PATIENT
  Age: 58 Year
  Sex: Female
  Weight: 45.36 kg

DRUGS (1)
  1. NEURONTIN [Suspect]
     Active Substance: GABAPENTIN
     Indication: FIBROMYALGIA
     Dosage: 900  TWICE DAILY, TAKEN BY MOUTH
     Route: 048
     Dates: start: 20140915

REACTIONS (2)
  - Product lot number issue [None]
  - Malaise [None]

NARRATIVE: CASE EVENT DATE: 20140916
